FAERS Safety Report 19677129 (Version 3)
Quarter: 2022Q1

REPORT INFORMATION
  Report Type: Report from Study
  Country: CA (occurrence: CA)
  Receive Date: 20210809
  Receipt Date: 20220302
  Transmission Date: 20220423
  Serious: Yes (Hospitalization)
  Sender: FDA-Public Use
  Company Number: CA-PFIZER INC-202100968508

PATIENT
  Age: 73 Year
  Sex: Female

DRUGS (4)
  1. FRAGMIN [Suspect]
     Active Substance: DALTEPARIN SODIUM
     Dosage: UNK
  2. FORTEO [Suspect]
     Active Substance: TERIPARATIDE
     Indication: Osteoporosis
     Dosage: 20 UG, 1X/DAY
     Route: 058
  3. FORTEO [Suspect]
     Active Substance: TERIPARATIDE
     Indication: Osteoporosis
     Dosage: 20 UG, 1X/DAY
     Route: 058
     Dates: start: 20200302, end: 20200323
  4. FORTEO [Suspect]
     Active Substance: TERIPARATIDE
     Dosage: 20 UG, 1X/DAY
     Route: 058
     Dates: start: 20200415

REACTIONS (5)
  - Blood pressure abnormal [Unknown]
  - Haemorrhagic diathesis [Unknown]
  - Hip fracture [Recovering/Resolving]
  - Accidental underdose [Unknown]
  - Device leakage [Unknown]
